FAERS Safety Report 4972020-X (Version None)
Quarter: 2006Q2

REPORT INFORMATION
  Report Type: 
  Country: None (occurrence: None)
  Receive Date: 20060407
  Receipt Date: 20060330
  Transmission Date: 20061013
  Serious: Yes (Other)
  Sender: FDA-Public Use
  Company Number: 2004-01-0629

PATIENT
  Age: 54 Year
  Sex: Male
  Weight: 84 kg

DRUGS (10)
  1. PEG-INTRON [Suspect]
     Indication: HEPATITIS C
     Dosage: 120 MCG QWK SUBCUTANEOUS
     Route: 058
     Dates: start: 20030728, end: 20031124
  2. RIBAVIRIN [Suspect]
     Indication: HEPATITIS C
     Dosage: 1000 MG QD ORAL
     Route: 048
     Dates: start: 20030728, end: 20031127
  3. AMITRIPTYLINE HCL [Suspect]
     Indication: NEURALGIA
     Dates: start: 20031201
  4. PREDNISONE TAB [Suspect]
     Indication: MORPHOEA
     Dosage: 60 MG QD ORAL
     Route: 048
     Dates: start: 20031202
  5. ENALAPRIL MALEATE [Concomitant]
  6. OMEPRAZOLE [Concomitant]
  7. DAPSONE [Concomitant]
  8. CLOFAZIMINE [Concomitant]
  9. CALCIUM CARBONATE SYRUP [Concomitant]
  10. POTASSIUM CHLORIDE [Concomitant]

REACTIONS (6)
  - ARTHRALGIA [None]
  - HALLUCINATIONS, MIXED [None]
  - LEPROSY [None]
  - MENTAL DISORDER [None]
  - MORPHOEA [None]
  - NEURALGIA [None]
